FAERS Safety Report 25371912 (Version 3)
Quarter: 2025Q3

REPORT INFORMATION
  Report Type: Report from Study
  Country: US (occurrence: US)
  Receive Date: 20250529
  Receipt Date: 20250827
  Transmission Date: 20251021
  Serious: Yes (Other)
  Sender: SUNOVION
  Company Number: US-SMPA-2025SPA006269

PATIENT
  Age: 63 Year
  Sex: Male

DRUGS (2)
  1. ORGOVYX [Suspect]
     Active Substance: RELUGOLIX
     Indication: Prostate cancer
     Route: 048
     Dates: start: 20250403, end: 20250403
  2. ORGOVYX [Suspect]
     Active Substance: RELUGOLIX
     Dosage: 120 MG, QD
     Route: 048
     Dates: start: 20250404

REACTIONS (17)
  - Syncope [Unknown]
  - Loss of consciousness [Unknown]
  - Dehydration [Unknown]
  - Blood pressure fluctuation [Unknown]
  - Dizziness postural [Unknown]
  - Pain [Unknown]
  - Blood urine present [Unknown]
  - Memory impairment [Unknown]
  - Disturbance in attention [Unknown]
  - Bladder dysfunction [Unknown]
  - Depressed mood [Unknown]
  - Insomnia [Unknown]
  - Hyperhidrosis [Unknown]
  - Fatigue [Unknown]
  - Hot flush [Unknown]
  - Myalgia [Unknown]
  - Arthralgia [Unknown]
